FAERS Safety Report 10257804 (Version 1)
Quarter: 2014Q2

REPORT INFORMATION
  Report Type: Spontaneous
  Country: US (occurrence: None)
  Receive Date: 20140623
  Receipt Date: 20140623
  Transmission Date: 20141212
  Serious: Yes (Other)
  Sender: FDA-Public Use
  Company Number: None

PATIENT
  Age: 38 Year
  Sex: Female

DRUGS (3)
  1. SOVALDI [Suspect]
     Indication: HEPATITIS
     Dosage: 1 400 MG TABLET  DAILY, QAM  BY MOUTH
     Route: 048
     Dates: start: 20140313
  2. RIBAVIRIN [Suspect]
     Indication: HEPATITIS
     Dosage: 1  600MG TAB AND 1  400MG TAB  600MG QAM  400MG QPM  BY MOUTH
     Route: 048
     Dates: start: 20140313
  3. GABAPENTIN [Concomitant]

REACTIONS (2)
  - Dyspareunia [None]
  - Loss of libido [None]
